FAERS Safety Report 13091126 (Version 1)
Quarter: 2017Q1

REPORT INFORMATION
  Report Type: Spontaneous
  Country: US (occurrence: US)
  Receive Date: 20170106
  Receipt Date: 20170106
  Transmission Date: 20170428
  Serious: Yes (Other)
  Sender: FDA-Public Use
  Company Number: US-AMGEN-USASP2016184961

PATIENT
  Age: 59 Year
  Sex: Female

DRUGS (1)
  1. ENBREL [Suspect]
     Active Substance: ETANERCEPT
     Indication: RHEUMATOID ARTHRITIS
     Dosage: 50 MG, QWK
     Route: 065
     Dates: start: 2001

REACTIONS (4)
  - Road traffic accident [Unknown]
  - Wrist fracture [Not Recovered/Not Resolved]
  - Foot fracture [Not Recovered/Not Resolved]
  - Hand fracture [Not Recovered/Not Resolved]

NARRATIVE: CASE EVENT DATE: 20161223
